FAERS Safety Report 12903124 (Version 1)
Quarter: 2016Q4

REPORT INFORMATION
  Report Type: Report from Study
  Country: US (occurrence: US)
  Receive Date: 20161102
  Receipt Date: 20161102
  Transmission Date: 20170207
  Serious: Yes (Hospitalization)
  Sender: FDA-Public Use
  Company Number: US-BAYER-2016-204540

PATIENT
  Age: 53 Year
  Sex: Female

DRUGS (3)
  1. BETAFERON [Suspect]
     Active Substance: INTERFERON BETA-1B
     Indication: PRODUCT USED FOR UNKNOWN INDICATION
     Dosage: 1 ML, QOD
     Route: 058
     Dates: start: 19950817
  2. OXYBUTYNIN [Concomitant]
     Active Substance: OXYBUTYNIN
  3. KLONOPIN [Concomitant]
     Active Substance: CLONAZEPAM

REACTIONS (4)
  - Wrong technique in product usage process [Recovered/Resolved]
  - Gait disturbance [Recovered/Resolved]
  - Injection site infection [Recovered/Resolved]
  - Injection site erythema [Not Recovered/Not Resolved]

NARRATIVE: CASE EVENT DATE: 201508
